FAERS Safety Report 14922254 (Version 1)
Quarter: 2018Q2

REPORT INFORMATION
  Report Type: Spontaneous
  Country: US (occurrence: US)
  Receive Date: 20180522
  Receipt Date: 20180522
  Transmission Date: 20180711
  Serious: Yes (Hospitalization, Other)
  Sender: FDA-Public Use
  Company Number: US-ASTELLAS-2018US023215

PATIENT
  Age: 10 Year
  Sex: Male

DRUGS (13)
  1. VANCOMYCIN [Suspect]
     Active Substance: VANCOMYCIN
     Dosage: UNK, UNKNOWN FREQ.
     Route: 065
  2. URSODIOL. [Concomitant]
     Active Substance: URSODIOL
     Route: 065
  3. TACROLIMUS. [Suspect]
     Active Substance: TACROLIMUS
     Dosage: UNK UNK, UNKNOWN FREQ.
     Route: 065
  4. TACROLIMUS. [Suspect]
     Active Substance: TACROLIMUS
     Dosage: 3-5 NG/ML
     Route: 065
  5. MICAFUNGIN [Suspect]
     Active Substance: MICAFUNGIN
     Indication: ANTIBIOTIC THERAPY
     Dosage: UNK UNK, UNKNOWN FREQ.
     Route: 065
  6. PREDNISONE. [Concomitant]
     Active Substance: PREDNISONE
     Route: 065
  7. TACROLIMUS. [Suspect]
     Active Substance: TACROLIMUS
     Indication: LIVER TRANSPLANT
     Route: 065
  8. TACROLIMUS. [Suspect]
     Active Substance: TACROLIMUS
     Dosage: 5-8 NG/ML
     Route: 065
  9. PREDNISONE. [Concomitant]
     Active Substance: PREDNISONE
     Indication: LIVER TRANSPLANT
     Dosage: UNK UNK, UNKNOWN FREQ.
     Route: 065
  10. SIROLIMUS. [Concomitant]
     Active Substance: SIROLIMUS
     Indication: LIVER TRANSPLANT
     Dosage: UNK UNK, UNKNOWN FREQ.
     Route: 065
  11. VANCOMYCIN [Suspect]
     Active Substance: VANCOMYCIN
     Indication: ANTIBIOTIC THERAPY
     Dosage: UNK UNK, UNKNOWN FREQ.
     Route: 065
  12. URSODIOL. [Concomitant]
     Active Substance: URSODIOL
     Indication: PRODUCT USED FOR UNKNOWN INDICATION
     Dosage: UNK UNK, UNKNOWN FREQ.
     Route: 065
  13. VANCOMYCIN [Suspect]
     Active Substance: VANCOMYCIN
     Dosage: UNK, UNKNOWN FREQ.
     Route: 065

REACTIONS (6)
  - Gastrointestinal obstruction [Unknown]
  - Liver transplant rejection [Unknown]
  - Iron deficiency anaemia [Unknown]
  - Gastrointestinal mucosal necrosis [Unknown]
  - Acute kidney injury [Recovered/Resolved]
  - Staphylococcal infection [Unknown]
